FAERS Safety Report 4813392-6 (Version None)
Quarter: 2005Q4

REPORT INFORMATION
  Report Type: 
  Country: None (occurrence: None)
  Receive Date: 20051026
  Receipt Date: 20051010
  Transmission Date: 20060501
  Serious: Yes (Hospitalization)
  Sender: FDA-Public Use
  Company Number: USA0510110480

PATIENT
  Age: 75 Year
  Sex: Female

DRUGS (3)
  1. EVISTA [Suspect]
     Indication: OSTEOPOROSIS
     Dates: start: 20000101
  2. CALCIUM CARBONATE W/VITAMIN D NOS [Concomitant]
  3. ACTONEL [Concomitant]

REACTIONS (1)
  - HYSTERECTOMY [None]
